FAERS Safety Report 7612186-6 (Version None)
Quarter: 2011Q3

REPORT INFORMATION
  Report Type: 
  Country: None (occurrence: None)
  Receive Date: 20110715
  Receipt Date: 20110706
  Transmission Date: 20111222
  Serious: Yes (Hospitalization, Other)
  Sender: FDA-Public Use
  Company Number: BR-GENENTECH-316378

PATIENT
  Sex: Female
  Weight: 74 kg

DRUGS (6)
  1. ARAVA [Concomitant]
     Indication: PRODUCT USED FOR UNKNOWN INDICATION
     Dosage: UNK
  2. DRAMIN [Concomitant]
     Indication: PREMEDICATION
     Dosage: UNK
     Route: 050
  3. CORTICOSTEROIDS [Concomitant]
     Indication: PREMEDICATION
     Dosage: UNK
     Route: 050
  4. SULFASALAZINE [Concomitant]
     Indication: PRODUCT USED FOR UNKNOWN INDICATION
     Dosage: UNK
  5. RITUXIMAB [Suspect]
     Indication: RHEUMATOID ARTHRITIS
     Dosage: 500 MG, UNK
     Route: 042
     Dates: start: 20110319
  6. PREDNISONE [Concomitant]
     Indication: PRODUCT USED FOR UNKNOWN INDICATION
     Dosage: 5 MG, UNK

REACTIONS (19)
  - DYSPNOEA [None]
  - DYSGEUSIA [None]
  - APHTHOUS STOMATITIS [None]
  - PRURITUS [None]
  - SALIVA ALTERED [None]
  - URINE OUTPUT INCREASED [None]
  - DYSPHAGIA [None]
  - CARDIOMYOPATHY [None]
  - PARAESTHESIA [None]
  - SOMNOLENCE [None]
  - ERYTHEMA [None]
  - FATIGUE [None]
  - BLOOD PRESSURE FLUCTUATION [None]
  - HYPERSENSITIVITY [None]
  - DIZZINESS [None]
  - CARDIAC FAILURE [None]
  - PALLOR [None]
  - HEART RATE INCREASED [None]
  - EYE MOVEMENT DISORDER [None]
